FAERS Safety Report 20324255 (Version 1)
Quarter: 2022Q1

REPORT INFORMATION
  Report Type: Spontaneous
  Country: FR (occurrence: FR)
  Receive Date: 20220111
  Receipt Date: 20220111
  Transmission Date: 20220423
  Serious: Yes (Hospitalization)
  Sender: FDA-Public Use
  Company Number: FR-TEVA-2021-FR-1979003

PATIENT
  Age: 6 Year
  Sex: Female
  Weight: 18 kg

DRUGS (11)
  1. METHOTREXATE (METHOTREXATE SODIUM) [Suspect]
     Active Substance: METHOTREXATE SODIUM
     Indication: Acute lymphocytic leukaemia
     Dosage: 5G/50ML
     Route: 037
     Dates: start: 20211105, end: 20211105
  2. METHOTREXATE (METHOTREXATE SODIUM) [Suspect]
     Active Substance: METHOTREXATE SODIUM
     Route: 041
     Dates: start: 20211104, end: 20211104
  3. ALIZAPRIDE HYDROCHLORIDE [Concomitant]
     Active Substance: ALIZAPRIDE HYDROCHLORIDE
     Indication: Prophylaxis of nausea and vomiting
     Route: 040
     Dates: start: 20211104, end: 20211108
  4. EMLA [Concomitant]
     Active Substance: LIDOCAINE\PRILOCAINE
     Indication: Pain
     Dosage: ADHESIVE SKIN DRESSING
     Route: 003
     Dates: start: 20211105, end: 20211105
  5. ATARAX [Concomitant]
     Active Substance: HYDROXYZINE HYDROCHLORIDE
     Indication: Anxiety
     Route: 048
     Dates: start: 20211105, end: 20211105
  6. DOLIPRANE [Concomitant]
     Active Substance: ACETAMINOPHEN
     Indication: Pain
     Route: 048
     Dates: start: 20211104, end: 20211111
  7. CHLORHEXIDINE GLUCONATE [Concomitant]
     Active Substance: CHLORHEXIDINE GLUCONATE
     Indication: Drug toxicity prophylaxis
     Dosage: SOLUTION FOR MOUTHWASH
     Route: 002
     Dates: start: 20211104, end: 20211111
  8. ONDANSETRON [Concomitant]
     Active Substance: ONDANSETRON
     Indication: Prophylaxis of nausea and vomiting
     Dosage: RENAUDIN
     Route: 040
     Dates: start: 20211104, end: 20211106
  9. FUROSEMIDE [Concomitant]
     Active Substance: FUROSEMIDE
     Indication: Urinary retention
     Dosage: 20 MG / 2 ML, ,(IM-IV), RENAUD
     Route: 040
     Dates: start: 20211104, end: 20211111
  10. MERCAPTOPURINE [Concomitant]
     Active Substance: MERCAPTOPURINE
     Indication: Acute lymphocytic leukaemia
     Route: 048
     Dates: start: 20210810
  11. LEUCOVORIN CALCIUM [Concomitant]
     Active Substance: LEUCOVORIN CALCIUM
     Indication: Chemotherapy side effect prophylaxis
     Dosage: 10 MG ,5 MG / 2
     Route: 040
     Dates: start: 20211106, end: 20211111

REACTIONS (1)
  - Drug clearance decreased [Recovered/Resolved]

NARRATIVE: CASE EVENT DATE: 20211106
